FAERS Safety Report 20192201 (Version 1)
Quarter: 2021Q4

REPORT INFORMATION
  Report Type: Spontaneous
  Country: US (occurrence: US)
  Receive Date: 20211216
  Receipt Date: 20211216
  Transmission Date: 20220303
  Serious: Yes (Death, Other)
  Sender: FDA-Public Use
  Company Number: US-SA-SAC20211212000012

PATIENT
  Age: 73 Year
  Sex: Male

DRUGS (1)
  1. ZANTAC [Suspect]
     Active Substance: RANITIDINE HYDROCHLORIDE
     Indication: Dyspepsia
     Dosage: 150 MG, QD
     Dates: start: 200901, end: 201301

REACTIONS (4)
  - Bladder cancer stage IV [Fatal]
  - Renal cancer [Fatal]
  - Hepatic cancer stage IV [Fatal]
  - Lymphoma [Fatal]

NARRATIVE: CASE EVENT DATE: 20190301
